FAERS Safety Report 12662024 (Version 9)
Quarter: 2017Q1

REPORT INFORMATION
  Report Type: Spontaneous
  Country: US (occurrence: US)
  Receive Date: 20160817
  Receipt Date: 20170207
  Transmission Date: 20170428
  Serious: Yes (Congenital Anomaly, Other)
  Sender: FDA-Public Use
  Company Number: PHEH2016US020547

PATIENT
  Sex: Female

DRUGS (1)
  1. ZOFRAN ODT [Suspect]
     Active Substance: ONDANSETRON HYDROCHLORIDE
     Indication: FOETAL EXPOSURE DURING PREGNANCY
     Dosage: MOTHER DOSE: 1 DF PRN (AS NEEDED)
     Route: 064

REACTIONS (17)
  - Failure to thrive [Unknown]
  - Cardiac failure congestive [Unknown]
  - Selective eating disorder [Unknown]
  - Ventricular septal defect [Unknown]
  - Heart disease congenital [Unknown]
  - Foetal exposure during pregnancy [Unknown]
  - Diarrhoea [Unknown]
  - Patent ductus arteriosus [Unknown]
  - Tricuspid valve incompetence [Unknown]
  - Right ventricular hypertrophy [Unknown]
  - Congenital pulmonary hypertension [Unknown]
  - Gastrooesophageal reflux disease [Unknown]
  - Cardiac murmur [Unknown]
  - Left ventricular hypertrophy [Unknown]
  - Mitral valve incompetence [Unknown]
  - Atrial septal defect [Unknown]
  - Constipation [Unknown]
